FAERS Safety Report 5995077-6 (Version None)
Quarter: 2008Q4

REPORT INFORMATION
  Report Type: 
  Country: None (occurrence: None)
  Receive Date: 20081212
  Receipt Date: 20081202
  Transmission Date: 20090506
  Serious: Yes (Hospitalization)
  Sender: FDA-Public Use
  Company Number: FR-SANOFI-SYNTHELABO-A02200803614

PATIENT
  Sex: Male

DRUGS (10)
  1. NEXIUM [Concomitant]
     Indication: DRUG USE FOR UNKNOWN INDICATION
     Dosage: UNK
     Route: 065
  2. MOTILIUM [Concomitant]
     Indication: DRUG USE FOR UNKNOWN INDICATION
     Dosage: UNK
     Route: 048
  3. DUSPATALIN [Concomitant]
     Indication: DRUG USE FOR UNKNOWN INDICATION
     Dosage: UNK
     Route: 048
  4. DAFALGAN [Concomitant]
     Dosage: UNK
     Route: 065
  5. TRANSIPEG [Concomitant]
     Indication: DRUG USE FOR UNKNOWN INDICATION
     Dosage: UNK
     Route: 048
  6. SINEMET [Suspect]
     Indication: PARKINSON'S DISEASE
     Route: 048
  7. TEMESTA [Suspect]
     Indication: DRUG USE FOR UNKNOWN INDICATION
     Route: 048
  8. FLUOXETINE [Suspect]
     Indication: DEPRESSION
     Route: 048
  9. XATRAL [Suspect]
     Indication: DRUG USE FOR UNKNOWN INDICATION
     Route: 048
  10. ZOLPIDEM [Suspect]
     Indication: DRUG USE FOR UNKNOWN INDICATION
     Route: 048

REACTIONS (5)
  - BALANCE DISORDER [None]
  - CEREBRAL HAEMATOMA [None]
  - DECUBITUS ULCER [None]
  - FALL [None]
  - RHABDOMYOLYSIS [None]
